FAERS Safety Report 17434276 (Version 6)
Quarter: 2020Q4

REPORT INFORMATION
  Report Type: Spontaneous
  Country: US (occurrence: US)
  Receive Date: 20200219
  Receipt Date: 20201014
  Transmission Date: 20210113
  Serious: Yes (Other)
  Sender: FDA-Public Use
  Company Number: US-PFIZER INC-2020073869

PATIENT
  Age: 74 Year
  Sex: Male
  Weight: 85.28 kg

DRUGS (1)
  1. XELJANZ XR [Suspect]
     Active Substance: TOFACITINIB CITRATE
     Dosage: 11 MG, 1X/DAY (ONCE A DAY IN THE MORNING)

REACTIONS (9)
  - Hypoacusis [Unknown]
  - Hypertension [Unknown]
  - Muscular weakness [Not Recovered/Not Resolved]
  - Cystitis [Unknown]
  - White blood cell count increased [Unknown]
  - Aphonia [Unknown]
  - Gait disturbance [Unknown]
  - Chronic obstructive pulmonary disease [Unknown]
  - Urinary tract infection [Unknown]
